FAERS Safety Report 11109768 (Version 1)
Quarter: 2015Q2

REPORT INFORMATION
  Report Type: Report from Study
  Country: LB (occurrence: LB)
  Receive Date: 20150513
  Receipt Date: 20150513
  Transmission Date: 20150821
  Serious: Yes (Other)
  Sender: FDA-Public Use
  Company Number: LB-MYLANLABS-2015M1015866

PATIENT

DRUGS (2)
  1. LEVETIRACETAM. [Suspect]
     Active Substance: LEVETIRACETAM
     Dosage: 47 MG/KG/DAY
     Route: 065
  2. LEVETIRACETAM. [Suspect]
     Active Substance: LEVETIRACETAM
     Indication: MYOCLONIC EPILEPSY
     Dosage: 31 MG/KG/DAY AND THEN THE DOSE WAS INCREASED TO 375MG TWICE DAILY (47 MG/KG/DAY)
     Route: 065

REACTIONS (3)
  - Myoclonic epilepsy [Recovered/Resolved]
  - Atonic seizures [Recovered/Resolved]
  - Condition aggravated [Recovered/Resolved]
